FAERS Safety Report 15037079 (Version 1)
Quarter: 2018Q2

REPORT INFORMATION
  Report Type: Spontaneous
  Country: US (occurrence: US)
  Receive Date: 20180530
  Receipt Date: 20180530
  Transmission Date: 20180711
  Serious: Yes (Hospitalization, Disabling)
  Sender: FDA-Public Use
  Company Number: None

PATIENT
  Sex: Male

DRUGS (5)
  1. SEVOFLURANE. [Suspect]
     Active Substance: SEVOFLURANE
     Indication: UNWANTED AWARENESS DURING ANAESTHESIA
     Route: 055
     Dates: start: 20050302, end: 20050302
  2. OXYCODONE [Concomitant]
     Active Substance: OXYCODONE
  3. PERCOCET [Concomitant]
     Active Substance: ACETAMINOPHEN\OXYCODONE HYDROCHLORIDE
  4. IRON [Concomitant]
     Active Substance: IRON
  5. ZINC. [Concomitant]
     Active Substance: ZINC

REACTIONS (3)
  - Partner stress [None]
  - Unwanted awareness during anaesthesia [None]
  - Diplegia [None]

NARRATIVE: CASE EVENT DATE: 20050302
